FAERS Safety Report 15132220 (Version 1)
Quarter: 2018Q3

REPORT INFORMATION
  Report Type: Spontaneous
  Country: US (occurrence: US)
  Receive Date: 20180711
  Receipt Date: 20180711
  Transmission Date: 20181010
  Serious: Yes (Other)
  Sender: FDA-Public Use
  Company Number: US-BEH-2018092647

PATIENT
  Age: 58 Year
  Sex: Male
  Weight: 97.52 kg

DRUGS (28)
  1. SODIUM CHLORIDE. [Concomitant]
     Active Substance: SODIUM CHLORIDE
  2. XANAX [Concomitant]
     Active Substance: ALPRAZOLAM
  3. VITAMINS WITH MINERALS [Concomitant]
     Active Substance: MINERALS\VITAMINS
  4. AMOXICILLIN CLAVULANIC ACID [Concomitant]
     Active Substance: AMOXICILLIN\CLAVULANIC ACID
  5. ALENDRONATE [Concomitant]
     Active Substance: ALENDRONATE SODIUM
  6. DIPHENHYDRAMINE. [Concomitant]
     Active Substance: DIPHENHYDRAMINE
  7. BUSPIRONE [Concomitant]
     Active Substance: BUSPIRONE HYDROCHLORIDE
  8. SPIRIVA [Concomitant]
     Active Substance: TIOTROPIUM BROMIDE MONOHYDRATE
  9. CANASA [Concomitant]
     Active Substance: MESALAMINE
  10. RISEDRONATE [Concomitant]
     Active Substance: RISEDRONATE SODIUM
  11. IPRATROPIUM BROMIDE AND ALBUTEROL SULFATE [Concomitant]
     Active Substance: ALBUTEROL SULFATE\IPRATROPIUM BROMIDE
  12. SYMBICORT [Concomitant]
     Active Substance: BUDESONIDE\FORMOTEROL FUMARATE DIHYDRATE
  13. ZEMAIRA [Suspect]
     Active Substance: .ALPHA.1-PROTEINASE INHIBITOR HUMAN
     Indication: ALPHA-1 ANTI-TRYPSIN DEFICIENCY
     Dosage: UNK
     Route: 042
  14. EPINEPHRINE. [Concomitant]
     Active Substance: EPINEPHRINE
  15. ALBUTEROL SULFATE. [Concomitant]
     Active Substance: ALBUTEROL SULFATE
  16. SERTRALINE [Concomitant]
     Active Substance: SERTRALINE HYDROCHLORIDE
  17. ZETIA [Concomitant]
     Active Substance: EZETIMIBE
  18. OXYGEN. [Concomitant]
     Active Substance: OXYGEN
  19. LMX                                /00033401/ [Concomitant]
  20. OSCAL [Concomitant]
     Active Substance: CALCIUM CARBONATE
  21. OMEPRAZOLE. [Concomitant]
     Active Substance: OMEPRAZOLE
  22. DILTIAZEM. [Concomitant]
     Active Substance: DILTIAZEM
  23. ZEMAIRA [Suspect]
     Active Substance: .ALPHA.1-PROTEINASE INHIBITOR HUMAN
     Dosage: 60 MG/KG, QW
     Route: 042
     Dates: start: 20050425
  24. LEVOFLOXACIN. [Concomitant]
     Active Substance: LEVOFLOXACIN
  25. PREDNISONE. [Concomitant]
     Active Substance: PREDNISONE
  26. MIRTAZAPINE. [Concomitant]
     Active Substance: MIRTAZAPINE
  27. DYMISTA [Concomitant]
     Active Substance: AZELASTINE HYDROCHLORIDE\FLUTICASONE PROPIONATE
  28. AZITHROMYCIN ANHYDROUS. [Concomitant]
     Active Substance: AZITHROMYCIN ANHYDROUS

REACTIONS (3)
  - Dizziness [Unknown]
  - Fall [Unknown]
  - Presyncope [Unknown]

NARRATIVE: CASE EVENT DATE: 2018
